FAERS Safety Report 14559355 (Version 1)
Quarter: 2018Q1

REPORT INFORMATION
  Report Type: Spontaneous
  Country: US (occurrence: US)
  Receive Date: 20180221
  Receipt Date: 20180221
  Transmission Date: 20180509
  Serious: Yes (Other)
  Sender: FDA-Public Use
  Company Number: None

PATIENT
  Age: 75 Year
  Sex: Female
  Weight: 69.4 kg

DRUGS (13)
  1. GLUCOSAMINE [Concomitant]
     Active Substance: GLUCOSAMINE
  2. FISH OIL [Concomitant]
     Active Substance: FISH OIL
  3. VITAMIN C [Concomitant]
     Active Substance: ASCORBIC ACID
  4. COQ10 [Concomitant]
     Active Substance: UBIDECARENONE
  5. ZEAXANTHIN [Concomitant]
     Active Substance: ZEAXANTHIN
  6. ASPIRIN. [Concomitant]
     Active Substance: ASPIRIN
  7. LUTEIN [Concomitant]
     Active Substance: LUTEIN
  8. NABUMETONE. [Suspect]
     Active Substance: NABUMETONE
     Indication: ARTHRITIS
     Dosage: 1 TAB DAILY AS NEEDED
     Route: 048
     Dates: start: 20150524, end: 20150524
  9. PREMARIN CREAM [Concomitant]
  10. FLAXSEED [Concomitant]
     Active Substance: FLAX SEED
  11. MULTI VITAMIN [Concomitant]
     Active Substance: VITAMINS
  12. CRANBERRY. [Concomitant]
     Active Substance: CRANBERRY
  13. CHONDROITIN [Concomitant]
     Active Substance: CHONDROITIN

REACTIONS (2)
  - Syncope [None]
  - Hypersensitivity [None]

NARRATIVE: CASE EVENT DATE: 20150524
